FAERS Safety Report 8188383-0 (Version None)
Quarter: 2012Q1

REPORT INFORMATION
  Report Type: 
  Country: None (occurrence: None)
  Receive Date: 20120306
  Receipt Date: 20120224
  Transmission Date: 20120608
  Serious: Yes (Other)
  Sender: FDA-Public Use
  Company Number: PHHY2012IT016473

PATIENT
  Sex: Male

DRUGS (5)
  1. ZOMETA [Suspect]
     Indication: METASTASES TO BONE
     Dosage: 4 MG, QMO
     Route: 042
     Dates: start: 20080530, end: 20080801
  2. AREDIA [Suspect]
     Indication: METASTASES TO BONE
     Dosage: 90 MG, QMO
     Route: 042
     Dates: start: 20081013, end: 20081127
  3. SUTENT [Suspect]
     Indication: RENAL CELL CARCINOMA
     Dosage: 50 MG,
     Route: 048
     Dates: start: 20080129
  4. PREDNISONE TAB [Concomitant]
     Dosage: UNK UKN, UNK
  5. XELODA [Concomitant]
     Dosage: UNK UKN, UNK

REACTIONS (1)
  - OSTEONECROSIS OF JAW [None]
